FAERS Safety Report 6158655-X (Version None)
Quarter: 2009Q2

REPORT INFORMATION
  Report Type: 
  Country: None (occurrence: None)
  Receive Date: 20090417
  Receipt Date: 20090409
  Transmission Date: 20091009
  Serious: Yes (Hospitalization)
  Sender: FDA-Public Use
  Company Number: US-CELGENEUS-163-21880-09040916

PATIENT
  Sex: Male
  Weight: 93.2 kg

DRUGS (3)
  1. REVLIMID [Suspect]
     Route: 048
     Dates: start: 20090202, end: 20090322
  2. DEXAMETHASONE TAB [Suspect]
     Route: 048
     Dates: start: 20090202, end: 20090323
  3. ASPIRIN [Concomitant]
     Indication: DRUG USE FOR UNKNOWN INDICATION
     Route: 065

REACTIONS (3)
  - BRONCHITIS HAEMOPHILUS [None]
  - HAEMOGLOBIN DECREASED [None]
  - VENTRICULAR DYSFUNCTION [None]
